FAERS Safety Report 6411336-7 (Version None)
Quarter: 2009Q4

REPORT INFORMATION
  Report Type: 
  Country: None (occurrence: None)
  Receive Date: 20091023
  Receipt Date: 20091013
  Transmission Date: 20100525
  Serious: Yes (Other)
  Sender: FDA-Public Use
  Company Number: US-BAYER-200928881NA

PATIENT
  Age: 31 Year
  Sex: Female

DRUGS (2)
  1. MIRENA [Suspect]
     Indication: CONTRACEPTION
     Dosage: CONTINUOUS
     Route: 015
     Dates: start: 20090721
  2. TEGRETOL [Concomitant]
     Indication: CONVULSION

REACTIONS (11)
  - ABDOMINAL PAIN LOWER [None]
  - AFFECT LABILITY [None]
  - DIZZINESS [None]
  - LIBIDO DECREASED [None]
  - MEDICAL DEVICE COMPLICATION [None]
  - MENORRHAGIA [None]
  - MOOD ALTERED [None]
  - NAUSEA [None]
  - RASH GENERALISED [None]
  - VAGINAL HAEMORRHAGE [None]
  - WEIGHT INCREASED [None]
